FAERS Safety Report 25589193 (Version 2)
Quarter: 2025Q3

REPORT INFORMATION
  Report Type: Spontaneous
  Country: US (occurrence: US)
  Receive Date: 20250722
  Receipt Date: 20250916
  Transmission Date: 20251020
  Serious: Yes (Other)
  Sender: SANOFI AVENTIS
  Company Number: US-SA-2025SA205331

PATIENT
  Sex: Female
  Weight: 75 kg

DRUGS (22)
  1. KEVZARA [Suspect]
     Active Substance: SARILUMAB
     Indication: Polymyalgia rheumatica
     Dosage: 200 MG, QOW
     Route: 058
  2. ESOMEPRAZOLE MAGNESIUM [Concomitant]
     Active Substance: ESOMEPRAZOLE MAGNESIUM
  3. DILTIAZEM [Concomitant]
     Active Substance: DILTIAZEM
  4. ICOSAPENT ETHYL [Concomitant]
     Active Substance: ICOSAPENT ETHYL
  5. PROLIA [Concomitant]
     Active Substance: DENOSUMAB
  6. ROSUVASTATIN CALCIUM [Concomitant]
     Active Substance: ROSUVASTATIN CALCIUM
  7. VITAMINS [Concomitant]
     Active Substance: VITAMINS
  8. REPATHA [Concomitant]
     Active Substance: EVOLOCUMAB
  9. FENOFIBRIC ACID [Concomitant]
     Active Substance: FENOFIBRIC ACID
  10. SYNTHROID [Concomitant]
     Active Substance: LEVOTHYROXINE SODIUM
  11. CITALOPRAM [Concomitant]
     Active Substance: CITALOPRAM
  12. CALCIUM\CHOLECALCIFEROL [Concomitant]
     Active Substance: CALCIUM\CHOLECALCIFEROL
  13. VITAMIN D [Concomitant]
     Active Substance: VITAMIN D NOS
  14. VITAMIN C [Concomitant]
     Active Substance: ASCORBIC ACID
  15. MAGNESIUM [Concomitant]
     Active Substance: MAGNESIUM
  16. ACETAMINOPHEN\HYDROCODONE [Concomitant]
     Active Substance: ACETAMINOPHEN\HYDROCODONE
  17. MICARDIS [Concomitant]
     Active Substance: TELMISARTAN
  18. PREDNISONE [Concomitant]
     Active Substance: PREDNISONE
  19. COENZYME Q10 [Concomitant]
     Active Substance: DIETARY SUPPLEMENT\UBIDECARENONE
  20. PREDNISONE [Concomitant]
     Active Substance: PREDNISONE
  21. ASPIRIN [Concomitant]
     Active Substance: ASPIRIN
  22. SAMBUCUS NIGRA [Concomitant]
     Active Substance: HOMEOPATHICS

REACTIONS (4)
  - Polymyalgia rheumatica [Unknown]
  - Colitis [Unknown]
  - Pain [Not Recovered/Not Resolved]
  - Drug ineffective [Unknown]
